FAERS Safety Report 15001159 (Version 2)
Quarter: 2018Q3

REPORT INFORMATION
  Report Type: Spontaneous
  Country: US (occurrence: US)
  Receive Date: 20180612
  Receipt Date: 20180831
  Transmission Date: 20181010
  Serious: Yes (Other)
  Sender: FDA-Public Use
  Company Number: US-PFIZER INC-2018233272

PATIENT
  Age: 55 Year
  Sex: Male

DRUGS (6)
  1. ATORVASTATIN [Concomitant]
     Active Substance: ATORVASTATIN
     Indication: BLOOD CHOLESTEROL ABNORMAL
     Dosage: 40 MG, 1X/DAY
     Route: 048
     Dates: start: 2008
  2. ULORIC [Concomitant]
     Active Substance: FEBUXOSTAT
     Indication: BLOOD URIC ACID INCREASED
  3. LYRICA [Suspect]
     Active Substance: PREGABALIN
     Indication: NEUROPATHY PERIPHERAL
     Dosage: 50 MG, DAILY (IN AM)
     Route: 048
     Dates: start: 2006
  4. AMLODIPINE BESILATE W/VALSARTAN [Concomitant]
     Active Substance: AMLODIPINE BESYLATE\VALSARTAN
     Indication: BLOOD PRESSURE ABNORMAL
     Dosage: UNK UNK, 1X/DAY(AMLODIPINE BESILATE 10MG; VALSARTAN 320MG)
     Route: 048
     Dates: start: 2008
  5. LYRICA [Suspect]
     Active Substance: PREGABALIN
     Dosage: 150 MG, DAILY(IN PM)
     Route: 048
     Dates: start: 2006
  6. ULORIC [Concomitant]
     Active Substance: FEBUXOSTAT
     Indication: GOUT
     Dosage: 40 MG, 1X/DAY
     Route: 048
     Dates: start: 201701

REACTIONS (2)
  - Drug ineffective for unapproved indication [Not Recovered/Not Resolved]
  - Intervertebral disc protrusion [Recovering/Resolving]

NARRATIVE: CASE EVENT DATE: 2006
